FAERS Safety Report 9539672 (Version 1)
Quarter: 2013Q3

REPORT INFORMATION
  Report Type: Spontaneous
  Country: US (occurrence: US)
  Receive Date: 20130920
  Receipt Date: 20130920
  Transmission Date: 20140515
  Serious: No
  Sender: FDA-Public Use
  Company Number: US-B.I. PHARMACEUTICALS,INC./RIDGEFIELD-2013-BI-28812BP

PATIENT
  Sex: Female
  Weight: 59 kg

DRUGS (13)
  1. SPIRIVA [Suspect]
     Indication: ASTHMA
     Dosage: 18 MCG
     Route: 055
     Dates: start: 2011
  2. OMEPRAZOLE [Concomitant]
     Indication: GASTROOESOPHAGEAL REFLUX DISEASE
     Dosage: 40 MG
     Route: 048
     Dates: start: 2009
  3. PROAIR [Concomitant]
     Indication: INHALATION THERAPY
     Dates: start: 2011
  4. SYNTHROID [Concomitant]
     Indication: HYPOTHYROIDISM
     Dosage: 0.025 MEQ
     Route: 048
  5. FUROSEMIDE [Concomitant]
     Indication: FLUID RETENTION
     Route: 048
     Dates: start: 2009
  6. HYDROXYZINE [Concomitant]
     Indication: NAUSEA
     Dosage: 25 MG
     Route: 048
     Dates: start: 2010
  7. KLOR CON [Concomitant]
     Indication: MINERAL SUPPLEMENTATION
     Route: 048
  8. CALCIUM [Concomitant]
     Indication: SUPPLEMENTATION THERAPY
     Dosage: 1200 MG
     Route: 048
  9. CENTRUM [Concomitant]
     Indication: SUPPLEMENTATION THERAPY
     Route: 048
  10. FLOVENT [Concomitant]
     Indication: ASTHMA
     Dosage: 2 PUF
     Route: 055
     Dates: start: 2011
  11. LOVASTATIN [Concomitant]
     Indication: BLOOD CHOLESTEROL INCREASED
     Dosage: 20 MG
     Route: 048
     Dates: start: 2009
  12. TRAVATAN 0.004% [Concomitant]
     Indication: GLAUCOMA
     Dosage: 1DROP ONCE DAILY
     Dates: start: 2012
  13. LASIX [Concomitant]
     Dosage: 80 MG

REACTIONS (2)
  - Off label use [Unknown]
  - Urinary retention [Recovered/Resolved]
